FAERS Safety Report 7565619-8 (Version None)
Quarter: 2011Q2

REPORT INFORMATION
  Report Type: 
  Country: None (occurrence: None)
  Receive Date: 20110616
  Receipt Date: 20110609
  Transmission Date: 20111010
  Serious: Yes (Hospitalization, Other)
  Sender: FDA-Public Use
  Company Number: ACO_24038_2011

PATIENT
  Age: 65 Year
  Sex: Male

DRUGS (8)
  1. REBIF [Suspect]
     Indication: PRODUCT USED FOR UNKNOWN INDICATION
     Dosage: 44 ?G, 3 IN 1 WK, SUBCUTANEOUS
     Route: 058
     Dates: start: 20080725
  2. PERCOCET /0044670/ (OXYCODONE HYDROCHLORIDE, OXYCODONE TEREPHTAHALATE, [Concomitant]
  3. AMPYRA [Suspect]
     Indication: PRODUCT USED FOR UNKNOWN INDICATION
     Dates: start: 20110201, end: 20110226
  4. ASPIRIN [Concomitant]
  5. COLACE (DOCUSATE SODIUM) [Concomitant]
  6. LISINOPRIL/HCTZ (HYDROCHLOROTHIAZIDE, LISINOPRIL) [Concomitant]
  7. FLUOXETINE [Concomitant]
  8. ROBAXIN [Concomitant]

REACTIONS (5)
  - DECREASED APPETITE [None]
  - NAUSEA [None]
  - MULTIPLE SCLEROSIS RELAPSE [None]
  - BLOOD CREATININE INCREASED [None]
  - GRAND MAL CONVULSION [None]
